FAERS Safety Report 16156077 (Version 1)
Quarter: 2019Q2

REPORT INFORMATION
  Report Type: Report from Study
  Country: GB (occurrence: GB)
  Receive Date: 20190404
  Receipt Date: 20190404
  Transmission Date: 20190711
  Serious: Yes (Other)
  Sender: FDA-Public Use
  Company Number: GB-IPSEN BIOPHARMACEUTICALS, INC.-2019-00713

PATIENT
  Sex: Female

DRUGS (1)
  1. SOMATULINE AUTOGEL 120MG [Suspect]
     Active Substance: LANREOTIDE ACETATE
     Indication: NEUROENDOCRINE TUMOUR
     Dosage: 120MG/0.5 ML
     Route: 058

REACTIONS (7)
  - Abdominal distension [Unknown]
  - Nausea [Unknown]
  - Coagulopathy [Recovered/Resolved]
  - Intestinal obstruction [Unknown]
  - Decreased appetite [Unknown]
  - Neoplasm progression [Unknown]
  - Abdominal pain [Unknown]
